FAERS Safety Report 8457761-4 (Version None)
Quarter: 2012Q2

REPORT INFORMATION
  Report Type: 
  Country: None (occurrence: None)
  Receive Date: 20120618
  Receipt Date: 20120618
  Transmission Date: 20120825
  Serious: Yes (Hospitalization)
  Sender: FDA-Public Use
  Company Number: None

PATIENT
  Sex: Female
  Weight: 60.7 kg

DRUGS (6)
  1. PREDNISONE TAB [Suspect]
     Dosage: 1100 MG
  2. VINCRISTINE [Suspect]
     Dosage: 3.2 MG
  3. CYCLOPHOSPHAMIDE [Suspect]
     Dosage: 1403 MG
  4. ETOPOSIDE [Suspect]
     Dosage: 376 MG
  5. DOXORUBICIN HYDROCHLORIDE [Suspect]
     Dosage: 74 MG
  6. RITUXIMAB (MOAB C2B8 ANTI CD20, CHIMERIC) [Suspect]
     Dosage: 700 MG

REACTIONS (4)
  - MALNUTRITION [None]
  - SMALL INTESTINAL STENOSIS [None]
  - DECREASED APPETITE [None]
  - WEIGHT DECREASED [None]
